FAERS Safety Report 18229490 (Version 1)
Quarter: 2020Q3

REPORT INFORMATION
  Report Type: Spontaneous
  Country: US (occurrence: US)
  Receive Date: 20200903
  Receipt Date: 20200903
  Transmission Date: 20201103
  Serious: No
  Sender: FDA-Public Use
  Company Number: US-GALDERMA-US19064583

PATIENT
  Sex: Female

DRUGS (4)
  1. BETAMETHASONE DIPROPIONATE. [Concomitant]
     Active Substance: BETAMETHASONE DIPROPIONATE
     Indication: GRANULOMA ANNULARE
     Route: 065
  2. BETAMETHASONE DIPROPIONATE. [Concomitant]
     Active Substance: BETAMETHASONE DIPROPIONATE
     Indication: SKIN LESION
  3. CLOBETASOL PROPIONATE (CLOBETASOL PROPIONATE) LOTION [Suspect]
     Active Substance: CLOBETASOL PROPIONATE
     Indication: GRANULOMA ANNULARE
     Dosage: 0.05%
     Route: 061
     Dates: start: 201812
  4. CLOBETASOL PROPIONATE (CLOBETASOL PROPIONATE) LOTION [Suspect]
     Active Substance: CLOBETASOL PROPIONATE
     Indication: SKIN LESION

REACTIONS (2)
  - Drug ineffective for unapproved indication [Recovered/Resolved]
  - Product use in unapproved indication [Recovered/Resolved]

NARRATIVE: CASE EVENT DATE: 201812
